FAERS Safety Report 23210773 (Version 1)
Quarter: 2023Q4

REPORT INFORMATION
  Report Type: Spontaneous
  Country: CN (occurrence: CN)
  Receive Date: 20231121
  Receipt Date: 20231121
  Transmission Date: 20240110
  Serious: Yes (Other)
  Sender: FDA-Public Use
  Company Number: CN-PFIZER INC-PV202300187336

PATIENT
  Age: 52 Year
  Sex: Female
  Weight: 55 kg

DRUGS (2)
  1. EPIRUBICIN HYDROCHLORIDE [Suspect]
     Active Substance: EPIRUBICIN HYDROCHLORIDE
     Indication: Interventional procedure
     Dosage: 60 MG, 1X/DAY
     Dates: start: 20230615, end: 20230615
  2. LOBAPLATIN [Suspect]
     Active Substance: LOBAPLATIN
     Indication: Interventional procedure
     Dosage: 50 MG, 1X/DAY
     Dates: start: 20230615, end: 20230615

REACTIONS (2)
  - Hepatic function abnormal [Not Recovered/Not Resolved]
  - Off label use [Unknown]

NARRATIVE: CASE EVENT DATE: 20230615
